FAERS Safety Report 8430845-2 (Version None)
Quarter: 2012Q2

REPORT INFORMATION
  Report Type: 
  Country: None (occurrence: None)
  Receive Date: 20120323
  Receipt Date: 20110701
  Transmission Date: 20120825
  Serious: Yes (Other)
  Sender: FDA-Public Use
  Company Number: 163-21880-11070279

PATIENT
  Age: 73 Year
  Sex: Female
  Weight: 47.1741 kg

DRUGS (5)
  1. VERAPAMIL [Concomitant]
  2. ASPIRIN [Concomitant]
  3. VITAMIN D [Concomitant]
  4. REVLIMID [Suspect]
     Indication: MULTIPLE MYELOMA
     Dosage: 10 MG, 2 IN 1 D, PO
     Route: 048
     Dates: start: 20081201
  5. METOPROLOL TARTRATE [Concomitant]

REACTIONS (1)
  - ATRIAL FIBRILLATION [None]
